FAERS Safety Report 12758178 (Version 1)
Quarter: 2016Q3

REPORT INFORMATION
  Report Type: Spontaneous
  Country: JP (occurrence: JP)
  Receive Date: 20160919
  Receipt Date: 20160919
  Transmission Date: 20161109
  Serious: Yes (Hospitalization, Other)
  Sender: FDA-Public Use
  Company Number: JP-MYLANLABS-2016M1039401

PATIENT

DRUGS (9)
  1. PREDNISOLONE. [Suspect]
     Active Substance: PREDNISOLONE
     Dosage: UNK
     Route: 065
  2. OXALIPLATIN. [Suspect]
     Active Substance: OXALIPLATIN
     Indication: RECTAL ADENOCARCINOMA
     Dosage: UNK
     Route: 065
     Dates: start: 200506
  3. PANITUMUMAB [Suspect]
     Active Substance: PANITUMUMAB
     Indication: RECTAL ADENOCARCINOMA
     Route: 065
  4. PREDNISOLONE. [Suspect]
     Active Substance: PREDNISOLONE
     Indication: NEPHROTIC SYNDROME
     Dosage: UNK
     Route: 065
     Dates: start: 200506
  5. FOLINIC ACID [Suspect]
     Active Substance: LEUCOVORIN
     Indication: RECTAL ADENOCARCINOMA
     Dosage: UNK
     Route: 065
  6. FLUOROURACIL. [Suspect]
     Active Substance: FLUOROURACIL
     Indication: RECTAL ADENOCARCINOMA
     Dosage: UNK
     Route: 065
  7. CICLOSPORIN [Suspect]
     Active Substance: CYCLOSPORINE
     Indication: NEPHROTIC SYNDROME
     Dosage: 250 MG/DAY
     Route: 065
     Dates: start: 200506
  8. MESALAZINE [Suspect]
     Active Substance: MESALAMINE
     Indication: COLITIS ULCERATIVE
     Dosage: 2250 MG/DAY
     Route: 065
  9. MIZORIBINE [Suspect]
     Active Substance: MIZORIBINE
     Indication: NEPHROTIC SYNDROME
     Dosage: 150 MG/DAY
     Route: 065

REACTIONS (4)
  - Rectal adenocarcinoma [Recovered/Resolved]
  - Metastases to lymph nodes [Recovered/Resolved]
  - Neuropathy peripheral [Not Recovered/Not Resolved]
  - Rash [Unknown]

NARRATIVE: CASE EVENT DATE: 2014
